FAERS Safety Report 24066019 (Version 1)
Quarter: 2024Q3

REPORT INFORMATION
  Report Type: Spontaneous
  Country: US (occurrence: None)
  Receive Date: 20240708
  Receipt Date: 20240708
  Transmission Date: 20241016
  Serious: Yes (Death)
  Sender: Public
  Company Number: None

PATIENT
  Age: 72 Year
  Sex: Male
  Weight: 100 kg

DRUGS (13)
  1. TACROLIMUS [Suspect]
     Active Substance: TACROLIMUS
     Indication: Heart transplant
     Dosage: 0.5 MG TWICE A DAY ORAL?
     Route: 048
     Dates: start: 20220818, end: 20240505
  2. ALLOPURINOL [Concomitant]
     Active Substance: ALLOPURINOL
  3. CINACALCET [Concomitant]
     Active Substance: CINACALCET
  4. LEVOTHYROXINE [Concomitant]
     Active Substance: LEVOTHYROXINE\LEVOTHYROXINE SODIUM
  5. SEVELAMER CARBONATE [Concomitant]
     Active Substance: SEVELAMER CARBONATE
  6. ATORVASTATIN [Concomitant]
     Active Substance: ATORVASTATIN
  7. AMIODARONE [Concomitant]
  8. FUROSEMIDE [Concomitant]
  9. NOVOLOG [Concomitant]
     Active Substance: INSULIN ASPART
  10. TRADJENTA [Concomitant]
  11. OLANZAPINE ODT [Concomitant]
  12. Timolol 0.5% Ophth Drops [Concomitant]
  13. Vitamin B12 [Concomitant]

REACTIONS (2)
  - Sepsis [None]
  - Renal failure [None]

NARRATIVE: CASE EVENT DATE: 20240505
